FAERS Safety Report 10036916 (Version 1)
Quarter: 2014Q1

REPORT INFORMATION
  Report Type: Spontaneous
  Country: US (occurrence: US)
  Receive Date: 20140326
  Receipt Date: 20140326
  Transmission Date: 20141002
  Serious: No
  Sender: FDA-Public Use
  Company Number: US-BIOGENIDEC-2014BI025735

PATIENT
  Age: 44 Year
  Sex: Female

DRUGS (10)
  1. TECFIDERA [Suspect]
     Indication: MULTIPLE SCLEROSIS
     Route: 048
     Dates: start: 20140206
  2. PAXIL [Concomitant]
  3. SEROQUEL [Concomitant]
  4. FLEXERIL [Concomitant]
  5. CRESTOR [Concomitant]
  6. TRILEPTAL [Concomitant]
  7. ZANAFLEX [Concomitant]
  8. LISINOPRIL [Concomitant]
  9. METFORMIN [Concomitant]
  10. VIVELLE DOT [Concomitant]

REACTIONS (6)
  - Fatigue [Recovered/Resolved]
  - Depression [Recovered/Resolved]
  - Hyperhidrosis [Recovered/Resolved]
  - Hypoaesthesia [Recovered/Resolved]
  - Ageusia [Recovered/Resolved]
  - Pain [Recovered/Resolved]
